APPROVED DRUG PRODUCT: CLARITHROMYCIN
Active Ingredient: CLARITHROMYCIN
Strength: 500MG
Dosage Form/Route: TABLET;ORAL
Application: A065136 | Product #001 | TE Code: AB
Applicant: SANDOZ INC
Approved: Aug 25, 2005 | RLD: No | RS: No | Type: RX